FAERS Safety Report 7653982-9 (Version None)
Quarter: 2011Q3

REPORT INFORMATION
  Report Type: 
  Country: None (occurrence: None)
  Receive Date: 20110803
  Receipt Date: 20110720
  Transmission Date: 20111222
  Serious: Yes (Hospitalization, Other)
  Sender: FDA-Public Use
  Company Number: PHHY2011US23077

PATIENT
  Sex: Male
  Weight: 95 kg

DRUGS (2)
  1. EXJADE [Suspect]
     Indication: MYELODYSPLASTIC SYNDROME
     Dosage: 2000 MG, UNK
     Route: 048
     Dates: start: 20110210
  2. EXJADE [Suspect]
     Dosage: 20 MG/KG, DAILY
     Route: 048

REACTIONS (4)
  - CONDITION AGGRAVATED [None]
  - TESTIS CANCER [None]
  - LIVER FUNCTION TEST ABNORMAL [None]
  - MYELODYSPLASTIC SYNDROME [None]
